FAERS Safety Report 5239542-8 (Version None)
Quarter: 2007Q1

REPORT INFORMATION
  Report Type: 
  Country: None (occurrence: None)
  Receive Date: 20070209
  Receipt Date: 20070126
  Transmission Date: 20070707
  Serious: Yes (Death, Hospitalization)
  Sender: FDA-Public Use
  Company Number: 02100-EUR-07-0004

PATIENT
  Age: 83 Year
  Sex: Male

DRUGS (2)
  1. CILOSTAZOL [Suspect]
     Indication: PERIPHERAL ARTERIAL OCCLUSIVE DISEASE
     Dosage: ORAL
     Route: 048
     Dates: start: 20070116
  2. CILOSTAZOL [Suspect]
     Indication: SKIN ULCER
     Dosage: ORAL
     Route: 048
     Dates: start: 20070116

REACTIONS (3)
  - ABDOMINAL PAIN [None]
  - CARDIOVASCULAR INSUFFICIENCY [None]
  - INTESTINAL HAEMORRHAGE [None]
